FAERS Safety Report 5325317-8 (Version None)
Quarter: 2007Q2

REPORT INFORMATION
  Report Type: 
  Country: None (occurrence: None)
  Receive Date: 20070515
  Receipt Date: 20070502
  Transmission Date: 20071010
  Serious: Yes (Disabling, Other)
  Sender: FDA-Public Use
  Company Number: GB-ASTRAZENECA-2007GB00779

PATIENT
  Age: 53 Year
  Sex: Female

DRUGS (6)
  1. TAMOXIFEN CITRATE [Suspect]
     Indication: BREAST CANCER
     Route: 048
     Dates: start: 20000101, end: 20061001
  2. PHENYTOIN [Concomitant]
     Indication: GRAND MAL CONVULSION
     Route: 048
  3. CARBAMAZEPINE [Concomitant]
     Indication: GRAND MAL CONVULSION
     Route: 048
  4. LANSOPRAZOLE [Concomitant]
     Indication: REFLUX OESOPHAGITIS
     Route: 048
     Dates: start: 20030101
  5. ALENDRONIC ACID [Concomitant]
     Route: 048
     Dates: start: 20030101
  6. CALCICAL D3 [Concomitant]
     Route: 048
     Dates: start: 20030101

REACTIONS (7)
  - ALTERED STATE OF CONSCIOUSNESS [None]
  - ASTHENIA [None]
  - ATONIC SEIZURES [None]
  - COMPLEX PARTIAL SEIZURES [None]
  - COORDINATION ABNORMAL [None]
  - DYSPHAGIA [None]
  - IMMOBILE [None]
